FAERS Safety Report 8313910-X (Version None)
Quarter: 2012Q2

REPORT INFORMATION
  Report Type: 
  Country: None (occurrence: None)
  Receive Date: 20120426
  Receipt Date: 20120426
  Transmission Date: 20120825
  Serious: Yes (Death, Hospitalization)
  Sender: FDA-Public Use
  Company Number: None

PATIENT
  Age: 34 Year
  Sex: Female

DRUGS (1)
  1. METHOTREXATE [Suspect]
     Indication: PSORIASIS
     Dosage: 5 MG
     Route: 048
     Dates: start: 20111001, end: 20111212

REACTIONS (9)
  - NAUSEA [None]
  - CHILLS [None]
  - ACIDOSIS [None]
  - COUGH [None]
  - TOXICITY TO VARIOUS AGENTS [None]
  - ASTHENIA [None]
  - JAUNDICE [None]
  - DIZZINESS [None]
  - PYREXIA [None]
